FAERS Safety Report 9806025 (Version 3)
Quarter: 2014Q1

REPORT INFORMATION
  Report Type: Report from Study
  Country: KR (occurrence: KR)
  Receive Date: 20140109
  Receipt Date: 20140122
  Transmission Date: 20141002
  Serious: Yes (Other)
  Sender: FDA-Public Use
  Company Number: KR-JNJFOC-20140100387

PATIENT
  Age: 13 Year
  Sex: Male
  Weight: 35.1 kg

DRUGS (9)
  1. REMICADE [Suspect]
     Indication: CROHN^S DISEASE
     Route: 042
     Dates: start: 20130723
  2. REMICADE [Suspect]
     Indication: CROHN^S DISEASE
     Route: 042
     Dates: start: 20131223, end: 20131223
  3. METHOTREXATE [Suspect]
     Indication: CROHN^S DISEASE
     Route: 048
     Dates: start: 20131223
  4. METHOTREXATE [Suspect]
     Indication: CROHN^S DISEASE
     Route: 048
     Dates: start: 20131030
  5. TRIZELE [Concomitant]
     Indication: CROHN^S DISEASE
     Dosage: 500 MG/100 ML
     Route: 042
     Dates: start: 20130716, end: 20130722
  6. NISOLONE [Concomitant]
     Indication: CROHN^S DISEASE
     Route: 048
     Dates: start: 20130723, end: 20130723
  7. FLASINYL [Concomitant]
     Indication: CROHN^S DISEASE
     Route: 048
     Dates: start: 20130723, end: 20130803
  8. PENTASA S.R. [Concomitant]
     Indication: CROHN^S DISEASE
     Route: 048
     Dates: start: 20130722, end: 20130724
  9. NYRIN [Concomitant]
     Indication: ADVERSE DRUG REACTION
     Route: 048
     Dates: start: 20131031

REACTIONS (1)
  - Abscess intestinal [Recovered/Resolved]
